FAERS Safety Report 13848441 (Version 1)
Quarter: 2017Q3

REPORT INFORMATION
  Report Type: Spontaneous
  Country: US (occurrence: US)
  Receive Date: 20170809
  Receipt Date: 20170809
  Transmission Date: 20171127
  Serious: Yes (Hospitalization)
  Sender: FDA-Public Use
  Company Number: None

PATIENT

DRUGS (1)
  1. CREST WHITENING SYSTEMS STRIPS WHITESTRIPS CLASSIC VIVID [Suspect]
     Active Substance: HYDROGEN PEROXIDE
     Dosage: INTRAORAL

REACTIONS (7)
  - Influenza like illness [None]
  - Nausea [None]
  - Feeling hot [None]
  - Pain [None]
  - Oropharyngeal pain [None]
  - Hyperhidrosis [None]
  - Back pain [None]
